FAERS Safety Report 8971389 (Version 1)
Quarter: 2012Q4

REPORT INFORMATION
  Report Type: 
  Country: US (occurrence: US)
  Receive Date: 20121217
  Receipt Date: 20121217
  Transmission Date: 20130627
  Serious: Yes (Other)
  Sender: FDA-Public Use
  Company Number: US-PFIZER INC-2012315163

PATIENT
  Age: 91 Year
  Sex: Female
  Weight: 77.1 kg

DRUGS (5)
  1. TOVIAZ [Suspect]
     Indication: URINARY INCONTINENCE
     Dosage: 4 mg, 1x/day
     Dates: start: 201211, end: 20121207
  2. GLIPIZIDE [Concomitant]
     Indication: DIABETES
     Dosage: UNK
  3. ISOSORBIDE [Concomitant]
     Indication: HEART DISORDER
     Dosage: UNK
  4. METOPROLOL [Concomitant]
     Indication: HEART DISORDER
     Dosage: UNK
  5. SIMVASTATIN [Concomitant]
     Indication: BLOOD CHOLESTEROL ABNORMAL
     Dosage: UNK

REACTIONS (2)
  - Constipation [Recovering/Resolving]
  - Haemorrhoids [Unknown]
